FAERS Safety Report 7629601-4 (Version None)
Quarter: 2011Q3

REPORT INFORMATION
  Report Type: 
  Country: None (occurrence: None)
  Receive Date: 20110722
  Receipt Date: 20110715
  Transmission Date: 20111222
  Serious: Yes (Other)
  Sender: FDA-Public Use
  Company Number: US-ROCHE-734380

PATIENT
  Sex: Female

DRUGS (3)
  1. BONIVA [Suspect]
     Indication: OSTEOPENIA
     Route: 048
     Dates: start: 20100301, end: 20100701
  2. LEVOTHYROXINE SODIUM [Concomitant]
  3. IBUPROFEN (ADVIL) [Concomitant]

REACTIONS (6)
  - MALAISE [None]
  - DEVICE FAILURE [None]
  - LOOSE TOOTH [None]
  - DENTAL CARIES [None]
  - TOOTHACHE [None]
  - BLOOD COUNT ABNORMAL [None]
